FAERS Safety Report 13644899 (Version 1)
Quarter: 2017Q2

REPORT INFORMATION
  Report Type: Spontaneous
  Country: US (occurrence: US)
  Receive Date: 20170612
  Receipt Date: 20170612
  Transmission Date: 20170830
  Serious: No
  Sender: FDA-Public Use
  Company Number: US-ROCHE-769222

PATIENT
  Age: 49 Year
  Sex: Male

DRUGS (5)
  1. SUNITINIB [Concomitant]
     Active Substance: SUNITINIB
     Dosage: FREQUENCY: 4 WEEK ON, 2 WEEK OFF SCHEDULE
     Route: 065
  2. CAPECITABINE. [Suspect]
     Active Substance: CAPECITABINE
     Dosage: REDUCED DOSE
     Route: 065
  3. GEMCITABINE [Suspect]
     Active Substance: GEMCITABINE\GEMCITABINE HYDROCHLORIDE
     Indication: METASTATIC RENAL CELL CARCINOMA
     Dosage: DOSE: 1200 MG/M2 OVER 2 HOURS BIWEEKLY
     Route: 042
  4. GEMCITABINE [Suspect]
     Active Substance: GEMCITABINE\GEMCITABINE HYDROCHLORIDE
     Dosage: REDUCED DOSE
     Route: 042
  5. CAPECITABINE. [Suspect]
     Active Substance: CAPECITABINE
     Indication: METASTATIC RENAL CELL CARCINOMA
     Dosage: FOR 21 DAYS OF A 28 DAY CYCLE.
     Route: 065

REACTIONS (1)
  - Palmar-plantar erythrodysaesthesia syndrome [Unknown]
